FAERS Safety Report 8876353 (Version 3)
Quarter: 2013Q2

REPORT INFORMATION
  Report Type: Report from Study
  Country: DE (occurrence: DE)
  Receive Date: 20121030
  Receipt Date: 20130626
  Transmission Date: 20140414
  Serious: Yes (Death, Life-Threatening, Hospitalization, Other)
  Sender: FDA-Public Use
  Company Number: DE-OTSUKA-EU-2011-10202

PATIENT
  Age: 68 Year
  Sex: Male
  Weight: 93 kg

DRUGS (15)
  1. SAMSCA [Suspect]
     Indication: INAPPROPRIATE ANTIDIURETIC HORMONE SECRETION
     Dosage: 7.5 MG MILLIGRAM(S), DAILY DOSE
     Route: 048
     Dates: start: 20110609, end: 20110630
  2. SAMSCA [Suspect]
     Dosage: 30 MG MILLIGRAM(S), DAILY DOSE
     Route: 048
     Dates: start: 20110630, end: 20110924
  3. MARCUMAR [Concomitant]
     Dosage: UNK, UNKNOWN
     Route: 058
     Dates: start: 20110628
  4. NOVODIGAL [Concomitant]
     Dosage: UNK, UNKNOWN
     Route: 048
     Dates: start: 20110628
  5. ATORVASTATIN [Concomitant]
     Indication: HYPERLIPIDAEMIA
     Dosage: 10 MG MILLIGRAM(S), DAILY DOSE
     Route: 048
     Dates: start: 20110628
  6. DILATREND [Concomitant]
     Dosage: 25 MG MILLIGRAM(S), DAILY DOSE
     Route: 048
     Dates: start: 20110628
  7. OLMESARTAN [Concomitant]
     Dosage: 40 MG MILLIGRAM(S), DAILY DOSE
     Route: 048
     Dates: start: 20110628
  8. ASS [Concomitant]
     Dosage: 100 MG MILLIGRAM(S), DAILY DOSE
     Route: 048
     Dates: start: 20110919
  9. VALSARTAN [Concomitant]
     Dosage: 80 MG MILLIGRAM(S), DAILY DOSE
     Route: 048
     Dates: start: 20110919
  10. RANEXA [Concomitant]
     Dosage: 650 MG MILLIGRAM(S), DAILY DOSE
     Route: 048
     Dates: start: 20110919
  11. SIMVASTATIN [Concomitant]
     Dosage: 40 MG MILLIGRAM(S), DAILY DOSE
     Route: 048
     Dates: start: 20110919
  12. FUROSEMID [Concomitant]
     Dosage: 40 MG MILLIGRAM(S), DAILY DOSE
     Route: 048
     Dates: start: 20110919
  13. PANTOPRAZOLE [Concomitant]
     Dosage: 20 MG MILLIGRAM(S), DAILY DOSE
     Route: 048
     Dates: start: 20110919
  14. KALINOR-BRAUSETABLETTEN [Concomitant]
     Dosage: UNK
     Route: 048
     Dates: start: 20110919
  15. CLEXANE [Concomitant]
     Dosage: 120 MG MILLIGRAM(S), DAILY DOSE
     Route: 058
     Dates: start: 20110919

REACTIONS (15)
  - Ventricular tachycardia [Recovered/Resolved]
  - Bronchial carcinoma [Fatal]
  - Pneumonia [Fatal]
  - Confusional state [Recovered/Resolved]
  - Somnolence [Recovered/Resolved]
  - General physical health deterioration [Recovered/Resolved]
  - Confusional state [Recovered/Resolved]
  - Somnolence [Recovered/Resolved]
  - General physical health deterioration [Recovered/Resolved]
  - Rapid correction of hyponatraemia [Recovered/Resolved]
  - Leukopenia [Unknown]
  - General physical health deterioration [Not Recovered/Not Resolved]
  - Dyspnoea [Not Recovered/Not Resolved]
  - Hypocalcaemia [Recovered/Resolved]
  - Wrong technique in drug usage process [Unknown]
